FAERS Safety Report 17574856 (Version 2)
Quarter: 2020Q1

REPORT INFORMATION
  Report Type: Spontaneous
  Country: US (occurrence: US)
  Receive Date: 20200324
  Receipt Date: 20200326
  Transmission Date: 20200409
  Serious: Yes (Hospitalization)
  Sender: FDA-Public Use
  Company Number: US-TEVA-2020-US-1208935

PATIENT
  Age: 24 Year
  Sex: Male

DRUGS (4)
  1. DEXAMETHASONE. [Concomitant]
     Active Substance: DEXAMETHASONE
     Indication: METASTASES TO CENTRAL NERVOUS SYSTEM
     Route: 065
  2. CISPLATIN. [Suspect]
     Active Substance: CISPLATIN
     Indication: TESTICULAR CHORIOCARCINOMA
     Route: 065
  3. ETOPOSIDE. [Suspect]
     Active Substance: ETOPOSIDE
     Indication: TESTICULAR CHORIOCARCINOMA
     Route: 065
  4. BLEOMYCIN [Suspect]
     Active Substance: BLEOMYCIN SULFATE
     Indication: TESTICULAR CHORIOCARCINOMA
     Route: 065

REACTIONS (12)
  - Left atrial dilatation [Recovered/Resolved]
  - Orthostatic hypotension [Recovered/Resolved]
  - Atrial thrombosis [Recovered/Resolved]
  - Pulmonary embolism [Recovered/Resolved]
  - Thrombosis [Recovered/Resolved]
  - Vomiting [Recovering/Resolving]
  - Atrial fibrillation [Recovered/Resolved]
  - Vena cava thrombosis [Recovered/Resolved]
  - Right ventricular dilatation [Recovered/Resolved]
  - Left ventricular hypertrophy [Recovered/Resolved]
  - Nausea [Recovering/Resolving]
  - Tricuspid valve disease [Recovered/Resolved]
